FAERS Safety Report 25578313 (Version 2)
Quarter: 2025Q3

REPORT INFORMATION
  Report Type: Spontaneous
  Country: US (occurrence: US)
  Receive Date: 20250718
  Receipt Date: 20250814
  Transmission Date: 20251020
  Serious: No
  Sender: MYLAN
  Company Number: US-MYLANLABS-2025M1057527

PATIENT
  Age: 64 Year
  Weight: 88.45 kg

DRUGS (2)
  1. LEVOTHYROXINE SODIUM [Suspect]
     Active Substance: LEVOTHYROXINE SODIUM
     Indication: Hypothyroidism
  2. LEVOTHYROXINE SODIUM [Suspect]
     Active Substance: LEVOTHYROXINE SODIUM
     Dosage: 150 MICROGRAM, QD (1 TABLET PER DAY)

REACTIONS (4)
  - Blood thyroid stimulating hormone decreased [Unknown]
  - Drug intolerance [Unknown]
  - Fatigue [Recovered/Resolved]
  - Product quality issue [Unknown]
